FAERS Safety Report 16648357 (Version 1)
Quarter: 2019Q3

REPORT INFORMATION
  Report Type: Spontaneous
  Country: FR (occurrence: FR)
  Receive Date: 20190730
  Receipt Date: 20190730
  Transmission Date: 20191004
  Serious: Yes (Other)
  Sender: FDA-Public Use
  Company Number: FR-ASTRAZENECA-2019SF07050

PATIENT
  Sex: Female

DRUGS (1)
  1. IMFINZI [Suspect]
     Active Substance: DURVALUMAB
     Indication: NON-SMALL CELL LUNG CANCER
     Route: 042

REACTIONS (5)
  - Cough [Recovered/Resolved]
  - Lung disorder [Unknown]
  - Thyroid disorder [Unknown]
  - Traumatic lung injury [Unknown]
  - Interstitial lung disease [Unknown]
